FAERS Safety Report 5229015-0 (Version None)
Quarter: 2007Q1

REPORT INFORMATION
  Report Type: 
  Country: None (occurrence: None)
  Receive Date: 20061201
  Receipt Date: 20060929
  Transmission Date: 20070707
  Serious: No
  Sender: FDA-Public Use
  Company Number: US200609003354

PATIENT
  Age: 65 Year
  Sex: Male

DRUGS (8)
  1. CYMBALTA [Suspect]
     Indication: DEPRESSION
     Dosage: 30 MG UNK ORAL ; 40 MG UNK ORAL ; 20 MG UNK ORAL
     Route: 048
     Dates: start: 20060701, end: 20060701
  2. CYMBALTA [Suspect]
     Indication: DEPRESSION
     Dosage: 30 MG UNK ORAL ; 40 MG UNK ORAL ; 20 MG UNK ORAL
     Route: 048
     Dates: start: 20060701, end: 20060801
  3. CYMBALTA [Suspect]
     Indication: DEPRESSION
     Dosage: 30 MG UNK ORAL ; 40 MG UNK ORAL ; 20 MG UNK ORAL
     Route: 048
     Dates: start: 20060101
  4. COZAAR [Concomitant]
  5. ACTOS/USA/(PIOGLITAZONE HYDROCHLORIDE) [Concomitant]
  6. AMBIEN [Concomitant]
  7. NEXIUM [Concomitant]
  8. LEVITRA /GFR/ (VARDENAFIL HYDROCHLORIDE) [Concomitant]

REACTIONS (6)
  - DRUG INEFFECTIVE [None]
  - DRY MOUTH [None]
  - FLAT AFFECT [None]
  - HEADACHE [None]
  - SEXUAL DYSFUNCTION [None]
  - SWEAT GLAND DISORDER [None]
